FAERS Safety Report 19711020 (Version 4)
Quarter: 2021Q3

REPORT INFORMATION
  Report Type: Spontaneous
  Country: ES (occurrence: ES)
  Receive Date: 20210817
  Receipt Date: 20210930
  Transmission Date: 20211014
  Serious: Yes (Hospitalization)
  Sender: FDA-Public Use
  Company Number: ES-MYLANLABS-2021M1051310

PATIENT
  Age: 75 Year
  Sex: Male

DRUGS (29)
  1. AMIODARONE [Suspect]
     Active Substance: AMIODARONE
     Indication: VENTRICULAR TACHYCARDIA
     Dosage: UNK
  2. FUROSEMIDE. [Suspect]
     Active Substance: FUROSEMIDE
     Indication: PRODUCT USED FOR UNKNOWN INDICATION
     Dosage: 120 MILLIGRAM, QD
  3. EPLERENONE. [Suspect]
     Active Substance: EPLERENONE
     Dosage: 25 MILLIGRAM, QD
  4. FUROSEMIDE. [Suspect]
     Active Substance: FUROSEMIDE
     Indication: PRODUCT USED FOR UNKNOWN INDICATION
     Dosage: 250 MILLIGRAM
     Route: 042
  5. RISPERIDONE. [Concomitant]
     Active Substance: RISPERIDONE
     Dosage: 0.25 MILLIGRAM, BID
  6. LEVOSIMENDAN [Suspect]
     Active Substance: LEVOSIMENDAN
     Indication: CARDIAC FAILURE CONGESTIVE
     Dosage: UNK
  7. MORPHINE [Suspect]
     Active Substance: MORPHINE
     Indication: DYSPNOEA
     Dosage: UNK
  8. CARVEDILOL. [Suspect]
     Active Substance: CARVEDILOL
     Indication: PRODUCT USED FOR UNKNOWN INDICATION
     Dosage: 3.13 MG/DAY DEPENDING ON BLOOD PRESSURE
  9. OMEPRAZOLE. [Concomitant]
     Active Substance: OMEPRAZOLE
     Dosage: UNK
  10. ATORVASTATIN [Suspect]
     Active Substance: ATORVASTATIN
     Indication: DYSLIPIDAEMIA
     Dosage: 20 MILLIGRAM, QD
  11. TIOTROPIUM [Suspect]
     Active Substance: TIOTROPIUM
     Indication: CHRONIC OBSTRUCTIVE PULMONARY DISEASE
     Dosage: 18 MILLIGRAM, QD
  12. EPLERENONE. [Suspect]
     Active Substance: EPLERENONE
     Indication: PRODUCT USED FOR UNKNOWN INDICATION
     Dosage: 50 MILLIGRAM, QD
  13. DIGOXIN. [Suspect]
     Active Substance: DIGOXIN
     Dosage: 0.13 MILLIGRAM, QD
  14. MAGNESIUM HYDROXIDE. [Concomitant]
     Active Substance: MAGNESIUM HYDROXIDE
     Dosage: 2.4 GRAM, QD
  15. IPRATROPIUM [Concomitant]
     Active Substance: IPRATROPIUM
     Dosage: 500 MICROGRAM, Q8H
  16. AMIODARONE [Suspect]
     Active Substance: AMIODARONE
     Dosage: 200 MILLIGRAM, QD
  17. ACENOCOUMAROL [Suspect]
     Active Substance: ACENOCOUMAROL
     Indication: ARRHYTHMIA
     Dosage: UNK
  18. SALMETEROL [Suspect]
     Active Substance: SALMETEROL
     Indication: CHRONIC OBSTRUCTIVE PULMONARY DISEASE
     Dosage: 25 MICROGRAM, BID
  19. ENALAPRIL [Suspect]
     Active Substance: ENALAPRIL
     Indication: HYPERTENSION
     Dosage: 2.5 MILLIGRAM, QD
  20. FLUTICASONE W/SALMETEROL [Suspect]
     Active Substance: FLUTICASONE PROPIONATE\SALMETEROL XINAFOATE
     Indication: DYSPNOEA
     Dosage: 2 DOSAGE FORM, QD (25MCG/125MCG, 2X PER DAY)
  21. ALLOPURINOL. [Suspect]
     Active Substance: ALLOPURINOL
     Indication: HYPERURICAEMIA
     Dosage: 300 MILLIGRAM, QD
  22. TAMSULOSIN [Suspect]
     Active Substance: TAMSULOSIN
     Indication: PRODUCT USED FOR UNKNOWN INDICATION
     Dosage: 0.4 MILLIGRAM, QD
  23. BISOPROLOL [Suspect]
     Active Substance: BISOPROLOL
     Indication: CARDIAC FAILURE CONGESTIVE
     Dosage: 2.5 MILLIGRAM, QD (1.25 MG, 2X PER DAY)
  24. ENALAPRIL [Suspect]
     Active Substance: ENALAPRIL
     Indication: CARDIAC FAILURE CONGESTIVE
     Dosage: 2.5 MILLIGRAM, QD
  25. SALBUTAMOL [Suspect]
     Active Substance: ALBUTEROL
     Indication: DYSPNOEA
     Dosage: UNK
  26. DIGOXIN. [Suspect]
     Active Substance: DIGOXIN
     Indication: CARDIAC FAILURE CONGESTIVE
     Dosage: 0.25 MILLIGRAM, QD
  27. FLUTICASONE. [Suspect]
     Active Substance: FLUTICASONE
     Indication: CHRONIC OBSTRUCTIVE PULMONARY DISEASE
     Dosage: 125 MICROGRAM, BID
  28. LEVOTHYROXINE. [Suspect]
     Active Substance: LEVOTHYROXINE
     Indication: HYPOTHYROIDISM
     Dosage: 75 MICROGRAM, QD
  29. BISOPROLOL [Suspect]
     Active Substance: BISOPROLOL
     Indication: HYPERTENSION
     Dosage: 2.5 MILLIGRAM, QD (1.25 MG, 2X PER DAY)

REACTIONS (5)
  - Drug ineffective [Unknown]
  - Hypotension [Unknown]
  - Hypothyroidism [Unknown]
  - Constipation [Recovering/Resolving]
  - Off label use [Unknown]
